FAERS Safety Report 17043682 (Version 1)
Quarter: 2019Q4

REPORT INFORMATION
  Report Type: Spontaneous
  Country: US (occurrence: US)
  Receive Date: 20191118
  Receipt Date: 20191118
  Transmission Date: 20200122
  Serious: Yes (Hospitalization, Other)
  Sender: FDA-Public Use
  Company Number: US-PFIZER INC-2019143023

PATIENT
  Age: 1 Year
  Sex: Female

DRUGS (9)
  1. BACTRIM [Concomitant]
     Active Substance: SULFAMETHOXAZOLE\TRIMETHOPRIM
     Indication: PROPHYLAXIS
     Dosage: 3 ML, 2X/DAY
     Dates: start: 201902, end: 201909
  2. RAPAMUNE [Suspect]
     Active Substance: SIROLIMUS
     Dosage: UNK
     Dates: start: 201902
  3. PENTAMIN [AZAMETHONIUM BROMIDE] [Concomitant]
     Indication: PROPHYLAXIS
     Dosage: UNK [EVERY 3 TO 4 WEEKS ]
     Dates: start: 20190914, end: 20191029
  4. RAPAMUNE [Suspect]
     Active Substance: SIROLIMUS
     Dosage: 0.2 ML, 2X/DAY
     Route: 048
     Dates: start: 201902
  5. BACTRIM [Concomitant]
     Active Substance: SULFAMETHOXAZOLE\TRIMETHOPRIM
     Dosage: 10 ML, UNK [3 TIMES/WEEK]
     Dates: start: 201904
  6. BACTRIM [Concomitant]
     Active Substance: SULFAMETHOXAZOLE\TRIMETHOPRIM
     Dosage: 4.5 ML, UNK [TWICE DAILY/2 TIMES A WEEK]
     Dates: start: 201908
  7. BACTRIM [Concomitant]
     Active Substance: SULFAMETHOXAZOLE\TRIMETHOPRIM
     Dosage: UNK
     Dates: end: 201909
  8. RAPAMUNE [Suspect]
     Active Substance: SIROLIMUS
     Dosage: 0.45 MG, 2X/DAY
  9. RAPAMUNE [Suspect]
     Active Substance: SIROLIMUS
     Indication: VASCULAR MALFORMATION
     Dosage: 0.3 MG, 2X/DAY
     Route: 048
     Dates: start: 20190321

REACTIONS (15)
  - Parainfluenzae virus infection [Recovered/Resolved]
  - Product use issue [Unknown]
  - Respiratory syncytial virus infection [Recovered/Resolved]
  - Pulmonary congestion [Not Recovered/Not Resolved]
  - Pyrexia [Not Recovered/Not Resolved]
  - Diarrhoea [Recovered/Resolved]
  - Bronchiectasis [Unknown]
  - Pyrexia [Recovered/Resolved]
  - Pneumonia [Recovered/Resolved]
  - Tracheitis [Recovered/Resolved]
  - Off label use [Unknown]
  - Lung disorder [Unknown]
  - Urticaria [Recovered/Resolved]
  - Astrovirus test positive [Recovered/Resolved]
  - Vomiting [Recovered/Resolved]

NARRATIVE: CASE EVENT DATE: 201902
